FAERS Safety Report 9697418 (Version 2)
Quarter: 2014Q1

REPORT INFORMATION
  Report Type: Spontaneous
  Country: JP (occurrence: JP)
  Receive Date: 20131120
  Receipt Date: 20140117
  Transmission Date: 20141002
  Serious: Yes (Other)
  Sender: FDA-Public Use
  Company Number: JP-JNJFOC-20131109368

PATIENT
  Sex: 0

DRUGS (1)
  1. EDURANT [Suspect]
     Indication: PRODUCT USED FOR UNKNOWN INDICATION
     Route: 048

REACTIONS (7)
  - Atrial fibrillation [Unknown]
  - Neurosis [Unknown]
  - Gastrointestinal disorder [Unknown]
  - Glucose tolerance impaired [Unknown]
  - Liver disorder [Unknown]
  - White blood cell count decreased [Unknown]
  - Off label use [Unknown]
